FAERS Safety Report 7991221-X (Version None)
Quarter: 2011Q4

REPORT INFORMATION
  Report Type: 
  Country: None (occurrence: None)
  Receive Date: 20111219
  Receipt Date: 20111216
  Transmission Date: 20120403
  Serious: Yes (Hospitalization)
  Sender: FDA-Public Use
  Company Number: US-GLAXOSMITHKLINE-A0958188A

PATIENT
  Age: 70 Year
  Sex: Male
  Weight: 71.8 kg

DRUGS (7)
  1. HYDROCHLOROTHIAZIDE [Concomitant]
  2. XELODA [Suspect]
     Indication: HEAD AND NECK CANCER
     Dosage: 2000MG TWICE PER DAY
     Dates: start: 20111115, end: 20111128
  3. LAPATINIB [Suspect]
     Indication: HEAD AND NECK CANCER
     Dosage: 1250MG PER DAY
     Dates: start: 20110913, end: 20111209
  4. ASPIRIN [Concomitant]
  5. OMEPRAZOLE [Concomitant]
  6. COLACE [Concomitant]
  7. ZOCOR [Concomitant]

REACTIONS (1)
  - DEHYDRATION [None]
